FAERS Safety Report 8231080-3 (Version None)
Quarter: 2012Q1

REPORT INFORMATION
  Report Type: 
  Country: None (occurrence: None)
  Receive Date: 20120323
  Receipt Date: 20120312
  Transmission Date: 20120608
  Serious: Yes (Other)
  Sender: FDA-Public Use
  Company Number: US-AMGEN-BRASP2012017202

PATIENT
  Age: 55 Year
  Sex: Female
  Weight: 52 kg

DRUGS (3)
  1. RISEDRONATE SODIUM [Concomitant]
     Indication: OSTEOPOROSIS
     Dosage: 35 MG, ONCE WEEKLY
     Dates: start: 20070101
  2. OSCAL                              /00751519/ [Concomitant]
     Indication: OSTEOPOROSIS
     Dosage: 500 MG, UNK
  3. ENBREL [Suspect]
     Indication: RHEUMATOID ARTHRITIS
     Dosage: 50 MG, WEEKLY
     Route: 058
     Dates: start: 20110201

REACTIONS (5)
  - INJECTION SITE PAIN [None]
  - BLOOD TRIGLYCERIDES ABNORMAL [None]
  - ANAEMIA [None]
  - LIMB DEFORMITY [None]
  - PAIN IN EXTREMITY [None]
